FAERS Safety Report 17386683 (Version 4)
Quarter: 2020Q2

REPORT INFORMATION
  Report Type: Spontaneous
  Country: US (occurrence: US)
  Receive Date: 20200206
  Receipt Date: 20200616
  Transmission Date: 20200713
  Serious: Yes (Other)
  Sender: FDA-Public Use
  Company Number: US-AMGEN-USASP2020018282

PATIENT
  Age: 69 Year
  Sex: Female
  Weight: 54.42 kg

DRUGS (2)
  1. PROLIA [Suspect]
     Active Substance: DENOSUMAB
     Indication: OSTEOPOROSIS POSTMENOPAUSAL
     Dosage: 60 MILLIGRAM, Q6MO
     Route: 058
  2. COPAXONE [Concomitant]
     Active Substance: GLATIRAMER ACETATE
     Indication: MULTIPLE SCLEROSIS
     Dosage: UNK

REACTIONS (5)
  - Hip fracture [Unknown]
  - Device use error [Unknown]
  - Accidental exposure to product [Unknown]
  - Needle issue [Unknown]
  - Impaired healing [Unknown]

NARRATIVE: CASE EVENT DATE: 20191106
